FAERS Safety Report 5260659-6 (Version None)
Quarter: 2007Q1

REPORT INFORMATION
  Report Type: 
  Country: None (occurrence: None)
  Receive Date: 20070309
  Receipt Date: 20061213
  Transmission Date: 20070707
  Serious: No
  Sender: FDA-Public Use
  Company Number: US-GLAXOSMITHKLINE-A0631292A

PATIENT
  Age: 42 Year
  Sex: Female

DRUGS (1)
  1. NICORETTE [Suspect]
     Dates: start: 20061201, end: 20061205

REACTIONS (2)
  - NONSPECIFIC REACTION [None]
  - ORAL MUCOSAL ERUPTION [None]
